FAERS Safety Report 4404107-4 (Version None)
Quarter: 2004Q3

REPORT INFORMATION
  Report Type: 
  Country: None (occurrence: None)
  Receive Date: 20040719
  Receipt Date: 20040623
  Transmission Date: 20050211
  Serious: Yes (Other)
  Sender: FDA-Public Use
  Company Number: 371950

PATIENT
  Age: 14 Year
  Sex: Male
  Weight: 75 kg

DRUGS (1)
  1. SORIATANE [Suspect]
     Indication: SKIN PAPILLOMA
     Dosage: 35 MG DAILY, ORAL
     Route: 048

REACTIONS (1)
  - DEAFNESS UNILATERAL [None]
